FAERS Safety Report 10020825 (Version 1)
Quarter: 2014Q1

REPORT INFORMATION
  Report Type: Spontaneous
  Country: FR (occurrence: FR)
  Receive Date: 20140319
  Receipt Date: 20140319
  Transmission Date: 20141002
  Serious: Yes (Hospitalization)
  Sender: FDA-Public Use
  Company Number: FR-ASTRAZENECA-2014SE18220

PATIENT
  Age: 71 Year
  Sex: Male

DRUGS (8)
  1. MERONEM [Suspect]
     Route: 042
     Dates: start: 20140124, end: 20140218
  2. CEFOTAXIME [Concomitant]
     Indication: BACTERAEMIA
     Dates: end: 20140122
  3. TAZOCILLINE [Concomitant]
     Dates: end: 20140124
  4. VANCOMYCINE [Concomitant]
     Dates: end: 20140204
  5. CARDENSIEL [Concomitant]
  6. TOPALGIC [Concomitant]
     Dosage: INTERMITTENT
  7. UNFRACTIONATED HEPARIN [Concomitant]
     Dates: end: 20140214
  8. HEMIGOXIN [Concomitant]
     Indication: TACHYCARDIA
     Dates: start: 201401

REACTIONS (3)
  - Drug reaction with eosinophilia and systemic symptoms [Recovered/Resolved]
  - Hepatocellular injury [Recovering/Resolving]
  - Rash [Recovered/Resolved]
